FAERS Safety Report 18485157 (Version 1)
Quarter: 2020Q4

REPORT INFORMATION
  Report Type: Spontaneous
  Country: US (occurrence: US)
  Receive Date: 20201110
  Receipt Date: 20201110
  Transmission Date: 20210114
  Serious: No
  Sender: FDA-Public Use
  Company Number: US-AMGEN-USASP2020179781

PATIENT

DRUGS (5)
  1. HETASTARCH. [Concomitant]
     Active Substance: HETASTARCH
     Dosage: 100 MILLILITER
  2. SODIUM HEPARIN [Concomitant]
     Active Substance: HEPARIN SODIUM
     Dosage: 10000 UNIT
  3. FILGRASTIM [Suspect]
     Active Substance: FILGRASTIM
     Indication: BONE MARROW DONATION
     Dosage: 300 MICROGRAM/DAY IN 5 PATIENTS AND 6 MICROGRAM /KG/DAY IN THE 3 PATIENTS.
     Route: 058
  4. TRISODIUM CITRATE [Concomitant]
     Indication: ANTICOAGULANT THERAPY
     Dosage: 30 MILLILITER
  5. SALINE [SODIUM CHLORIDE] [Concomitant]
     Active Substance: SODIUM CHLORIDE
     Dosage: 400 MILLILITER

REACTIONS (7)
  - Anaemia [Unknown]
  - Bone pain [Recovered/Resolved]
  - Arthralgia [Recovered/Resolved]
  - Off label use [Unknown]
  - Product dose omission issue [Unknown]
  - Platelet count decreased [Unknown]
  - Haematocrit decreased [Unknown]
